FAERS Safety Report 25945538 (Version 1)
Quarter: 2025Q4

REPORT INFORMATION
  Report Type: Spontaneous
  Country: GB (occurrence: GB)
  Receive Date: 20251021
  Receipt Date: 20251021
  Transmission Date: 20260118
  Serious: Yes (Other)
  Sender: PFIZER
  Company Number: None

PATIENT
  Age: 59 Year
  Sex: Female
  Weight: 60 kg

DRUGS (2)
  1. FLUCONAZOLE [Suspect]
     Active Substance: FLUCONAZOLE
     Indication: Vulvovaginal candidiasis
     Dosage: 150MG ONCE AT NIGHT
     Dates: start: 20251016, end: 20251017
  2. OESTROGEL [ESTRADIOL] [Concomitant]
     Dosage: UNK
     Dates: start: 20190808

REACTIONS (5)
  - Lip swelling [Recovered/Resolved]
  - Swollen tongue [Unknown]
  - Rash [Recovering/Resolving]
  - Rash papular [Not Recovered/Not Resolved]
  - Paraesthesia oral [Recovered/Resolved]

NARRATIVE: CASE EVENT DATE: 20251016
